FAERS Safety Report 5888431-4 (Version None)
Quarter: 2008Q3

REPORT INFORMATION
  Report Type: 
  Country: None (occurrence: None)
  Receive Date: 20080918
  Receipt Date: 20080908
  Transmission Date: 20090109
  Serious: Yes (Death)
  Sender: FDA-Public Use
  Company Number: IT-PFIZER INC-2008076259

PATIENT

DRUGS (2)
  1. SILDENAFIL CITRATE [Suspect]
     Indication: RIGHT VENTRICULAR DYSFUNCTION
  2. SILDENAFIL CITRATE [Suspect]
     Indication: PULMONARY HYPERTENSION

REACTIONS (1)
  - MULTI-ORGAN FAILURE [None]
